FAERS Safety Report 8912705 (Version 1)
Quarter: 2012Q4

REPORT INFORMATION
  Report Type: 
  Country: CA (occurrence: CA)
  Receive Date: 20121115
  Receipt Date: 20121115
  Transmission Date: 20130627
  Serious: Yes (Other)
  Sender: FDA-Public Use
  Company Number: CA-AMGEN-CANSP2012066022

PATIENT
  Age: 69 Year
  Sex: Female
  Weight: 60 kg

DRUGS (19)
  1. ENBREL [Suspect]
     Indication: RHEUMATOID ARTHRITIS
     Dosage: 50 mg, qwk
     Dates: end: 20120911
  2. MELOXICAM [Concomitant]
     Dosage: 15 mg daily
  3. HYDROMORPHONE [Concomitant]
     Dosage: UNK
  4. PARIET [Concomitant]
     Dosage: 20 mg, qd for PPI
     Route: 048
  5. ATENOLOL [Concomitant]
     Dosage: 35 mg, qwk for O-P
     Route: 048
     Dates: start: 201205
  6. ATENOLOL [Concomitant]
     Dosage: 25 mg, qd
  7. CALCIUM [Concomitant]
     Dosage: UNK
  8. VITAMIN D /00107901/ [Concomitant]
     Dosage: UNK
  9. IRON [Concomitant]
     Dosage: Reacted iron daily
  10. TYLENOL /00020001/ [Concomitant]
     Dosage: UNK
  11. ATIVAN [Concomitant]
     Dosage: UNK
  12. MULTIVITAMINS, PLAIN [Concomitant]
     Dosage: UNK UNK, qd
  13. ALENDRONATE [Concomitant]
     Dosage: 70 mg, qwk
  14. RABEPRAZOLE [Concomitant]
     Dosage: 20 mg, qd
  15. ASA [Concomitant]
     Dosage: 81 mg, qd
  16. LISINOPRIL [Concomitant]
     Dosage: 20/12.5 mg, qd
  17. LORAZEPAM [Concomitant]
     Dosage: 1 mg, qd
  18. DILAUDID [Concomitant]
     Dosage: 4 mg, tid prn
  19. MOBIZOX [Concomitant]
     Dosage: 15 mg, qd
     Route: 048

REACTIONS (4)
  - Localised infection [Recovering/Resolving]
  - Staphylococcal infection [Not Recovered/Not Resolved]
  - Arthritis bacterial [Not Recovered/Not Resolved]
  - Thrombocytopenia [Unknown]
